FAERS Safety Report 16613416 (Version 1)
Quarter: 2019Q3

REPORT INFORMATION
  Report Type: Report from Study
  Country: None (occurrence: CO)
  Receive Date: 20190723
  Receipt Date: 20190723
  Transmission Date: 20191004
  Serious: Yes (Other)
  Sender: FDA-Public Use
  Company Number: CO-ABBVIE-19K-036-2862496-00

PATIENT
  Age: 31 Year
  Sex: Female
  Weight: 83 kg

DRUGS (1)
  1. HUMIRA [Suspect]
     Active Substance: ADALIMUMAB
     Indication: HIDRADENITIS
     Route: 058
     Dates: start: 20180712, end: 20190322

REACTIONS (2)
  - Gait disturbance [Recovering/Resolving]
  - Scoliosis [Recovering/Resolving]

NARRATIVE: CASE EVENT DATE: 201903
